FAERS Safety Report 17655562 (Version 10)
Quarter: 2022Q4

REPORT INFORMATION
  Report Type: Spontaneous
  Country: US (occurrence: US)
  Receive Date: 20200410
  Receipt Date: 20221220
  Transmission Date: 20230112
  Serious: No
  Sender: FDA-Public Use
  Company Number: US-PFIZER INC-2017524750

PATIENT
  Age: 57 Year
  Sex: Female
  Weight: 86.18 kg

DRUGS (8)
  1. SOMAVERT [Suspect]
     Active Substance: PEGVISOMANT
     Indication: Acromegaly
     Dosage: 40 MG, SINGLE (DAY 1)
     Route: 058
     Dates: start: 20090401, end: 20090401
  2. SOMAVERT [Suspect]
     Active Substance: PEGVISOMANT
     Indication: Gigantism
     Dosage: 10 MG, DAILY
     Route: 058
     Dates: start: 20090402
  3. SOMAVERT [Suspect]
     Active Substance: PEGVISOMANT
     Dosage: 20 MG, 1X/DAY
     Route: 058
     Dates: start: 2009, end: 20180927
  4. SOMAVERT [Suspect]
     Active Substance: PEGVISOMANT
     Dosage: 20 MG, 1X/DAY
     Route: 058
     Dates: start: 20181127
  5. SOMAVERT [Suspect]
     Active Substance: PEGVISOMANT
     Dosage: 20 MG, 1X/DAY
     Route: 058
     Dates: start: 20200402, end: 20201223
  6. SOMAVERT [Suspect]
     Active Substance: PEGVISOMANT
     Dosage: 20 MG, DAILY
     Dates: end: 20210401
  7. SOMAVERT [Suspect]
     Active Substance: PEGVISOMANT
     Dosage: 20 MG, DAILY
     Route: 058
     Dates: start: 20210827
  8. SOMAVERT [Suspect]
     Active Substance: PEGVISOMANT
     Dosage: 20 MG, DAILY
     Route: 058
     Dates: start: 20090104

REACTIONS (7)
  - Therapeutic product effect decreased [Not Recovered/Not Resolved]
  - Product dose omission issue [Unknown]
  - Cluster headache [Recovering/Resolving]
  - Bone pain [Unknown]
  - Arthralgia [Not Recovered/Not Resolved]
  - COVID-19 [Recovered/Resolved]
  - Weight increased [Not Recovered/Not Resolved]

NARRATIVE: CASE EVENT DATE: 20170101
